FAERS Safety Report 21028976 (Version 1)
Quarter: 2022Q2

REPORT INFORMATION
  Report Type: Spontaneous
  Country: ES (occurrence: ES)
  Receive Date: 20220630
  Receipt Date: 20220630
  Transmission Date: 20220720
  Serious: Yes (Death, Other)
  Sender: FDA-Public Use
  Company Number: ES-AMGEN-ESPSP2022110611

PATIENT

DRUGS (6)
  1. FILGRASTIM [Suspect]
     Active Substance: FILGRASTIM
     Indication: Prophylaxis
     Route: 065
  2. IDARUBICIN [Concomitant]
     Active Substance: IDARUBICIN
  3. CYTARABINE [Concomitant]
     Active Substance: CYTARABINE
  4. FLUDARABINE [Concomitant]
     Active Substance: FLUDARABINE PHOSPHATE
  5. AZACITIDINE [Concomitant]
     Active Substance: AZACITIDINE
  6. DECITABINE [Concomitant]
     Active Substance: DECITABINE

REACTIONS (4)
  - Death [Fatal]
  - Acute myeloid leukaemia recurrent [Unknown]
  - Drug resistance [Unknown]
  - Therapy partial responder [Unknown]
